FAERS Safety Report 25610047 (Version 3)
Quarter: 2025Q3

REPORT INFORMATION
  Report Type: Spontaneous
  Country: US (occurrence: US)
  Receive Date: 20250728
  Receipt Date: 20250815
  Transmission Date: 20251021
  Serious: Yes (Disabling, Other)
  Sender: ALEXION PHARMACEUTICALS
  Company Number: US-AstraZeneca-CH-00916019AP

PATIENT
  Sex: Female

DRUGS (2)
  1. NEXIUM [Suspect]
     Active Substance: ESOMEPRAZOLE MAGNESIUM
  2. PRILOSEC [Suspect]
     Active Substance: OMEPRAZOLE MAGNESIUM
     Route: 065

REACTIONS (13)
  - Medication error [Unknown]
  - Product dispensing error [Unknown]
  - Off label use [Unknown]
  - Gastrooesophageal reflux disease [Unknown]
  - Mental impairment [Unknown]
  - Product physical issue [Unknown]
  - Reading disorder [Unknown]
  - Drug ineffective [Unknown]
  - Disability [Unknown]
  - Cerebrovascular accident [Unknown]
  - Memory impairment [Unknown]
  - Product packaging quantity issue [Unknown]
  - Barrett^s oesophagus [Unknown]
